FAERS Safety Report 4564840-0 (Version None)
Quarter: 2005Q1

REPORT INFORMATION
  Report Type: 
  Country: None (occurrence: None)
  Receive Date: 20050128
  Receipt Date: 20041222
  Transmission Date: 20050727
  Serious: Yes (Hospitalization)
  Sender: FDA-Public Use
  Company Number: DE-MERCK-0412DEU00210

PATIENT
  Age: 76 Year
  Sex: Male

DRUGS (2)
  1. VIOXX [Suspect]
     Indication: CHEST PAIN
     Route: 048
     Dates: start: 20030128
  2. VIOXX [Suspect]
     Route: 048
     Dates: end: 20031229

REACTIONS (7)
  - ARRHYTHMIA [None]
  - CAROTID ARTERY STENOSIS [None]
  - HEART RATE IRREGULAR [None]
  - NECK PAIN [None]
  - THYROID NEOPLASM [None]
  - ULNAR NERVE INJURY [None]
  - VERTEBRAL ARTERY OCCLUSION [None]
